FAERS Safety Report 9482027 (Version 9)
Quarter: 2015Q2

REPORT INFORMATION
  Report Type: Report from Study
  Country: DE (occurrence: DE)
  Receive Date: 20130828
  Receipt Date: 20150626
  Transmission Date: 20150821
  Serious: Yes (Hospitalization)
  Sender: FDA-Public Use
  Company Number: DE-UCBSA-095813

PATIENT
  Sex: Female
  Weight: 78 kg

DRUGS (10)
  1. CHOLECALCIFEROL [Concomitant]
     Active Substance: CHOLECALCIFEROL
     Dosage: SUNDAYS
  2. PREDNISOLONE. [Concomitant]
     Active Substance: PREDNISOLONE
     Indication: RHEUMATOID ARTHRITIS
     Dosage: ONCE NIGHTLY
     Dates: start: 20010820
  3. ACETYLSALICYLIC ACID [Concomitant]
     Active Substance: ASPIRIN
     Indication: HYPERTENSIVE HEART DISEASE
     Dosage: 100 MG, ONCE DAILY (QD)
  4. CANDESARTAN [Concomitant]
     Active Substance: CANDESARTAN
     Indication: ESSENTIAL HYPERTENSION
     Dosage: 32 MG, ONCE DAILY (QD)
  5. LEVOTHYROXINE [Concomitant]
     Active Substance: LEVOTHYROXINE
     Dosage: 112 ?G, ONCE DAILY (QD)
  6. OMEPRAZOLE. [Concomitant]
     Active Substance: OMEPRAZOLE
     Indication: ABDOMINAL PAIN UPPER
     Dosage: 20 MG, ONCE DAILY (QD)
     Dates: start: 20120430
  7. FENTANYL. [Concomitant]
     Active Substance: FENTANYL
     Indication: ARTHRALGIA
     Dosage: DOSE: 50MG PRN
     Dates: start: 20110302
  8. METAMIZOLE [Concomitant]
     Active Substance: METAMIZOLE
     Dosage: 30 DROPS
  9. CERTOLIZUMAB PEGOL RA [Suspect]
     Active Substance: CERTOLIZUMAB PEGOL
     Indication: RHEUMATOID ARTHRITIS
     Dosage: DOSE: 200 MG;
     Route: 058
     Dates: start: 20110806, end: 20130412
  10. ALPHACALZIDOL [Concomitant]
     Dosage: 1 MG, ONCE DAILY (QD)

REACTIONS (3)
  - Cholecystitis [Recovered/Resolved]
  - Post procedural haematoma [Recovering/Resolving]
  - Hepatic enzyme increased [Unknown]

NARRATIVE: CASE EVENT DATE: 201306
